FAERS Safety Report 6660725-4 (Version None)
Quarter: 2010Q1

REPORT INFORMATION
  Report Type: 
  Country: None (occurrence: None)
  Receive Date: 20100331
  Receipt Date: 20100323
  Transmission Date: 20100710
  Serious: Yes (Hospitalization)
  Sender: FDA-Public Use
  Company Number: DE-ASTRAZENECA-2010SE12815

PATIENT
  Age: 16036 Day
  Sex: Male

DRUGS (2)
  1. SEROQUEL [Suspect]
     Indication: SCHIZOPHRENIA
     Route: 048
     Dates: start: 20040101, end: 20090101
  2. SEROQUEL [Suspect]
     Route: 048
     Dates: start: 20090301

REACTIONS (1)
  - NEUROGENIC BLADDER [None]
